FAERS Safety Report 7635360-1 (Version None)
Quarter: 2011Q3

REPORT INFORMATION
  Report Type: 
  Country: None (occurrence: None)
  Receive Date: 20110726
  Receipt Date: 20101217
  Transmission Date: 20111222
  Serious: No
  Sender: FDA-Public Use
  Company Number: US-GLAXOSMITHKLINE-A0900374A

PATIENT
  Age: 77 Year
  Sex: Male

DRUGS (2)
  1. EXTINA [Suspect]
     Indication: PRODUCT USED FOR UNKNOWN INDICATION
     Dosage: 1APP TWICE PER DAY
     Route: 061
     Dates: start: 20101214
  2. COAL TAR SHAMPOO [Concomitant]

REACTIONS (3)
  - RASH MACULAR [None]
  - SKIN EXFOLIATION [None]
  - APPLICATION SITE PAIN [None]
